FAERS Safety Report 4706895-6 (Version None)
Quarter: 2005Q3

REPORT INFORMATION
  Report Type: 
  Country: None (occurrence: None)
  Receive Date: 20050701
  Receipt Date: 20050621
  Transmission Date: 20060218
  Serious: Yes (Other)
  Sender: FDA-Public Use
  Company Number: HQWYE309617OCT03

PATIENT
  Age: 55 Year
  Sex: Female
  Weight: 49.94 kg

DRUGS (1)
  1. PREMPRO [Suspect]
     Dosage: UNSPECIFIED DOSAGE WAS ON THERAPY IN 1997, ORAL
     Route: 048

REACTIONS (1)
  - BREAST CANCER METASTATIC [None]
